FAERS Safety Report 22393098 (Version 1)
Quarter: 2023Q2

REPORT INFORMATION
  Report Type: Spontaneous
  Country: US (occurrence: US)
  Receive Date: 20230601
  Receipt Date: 20230601
  Transmission Date: 20230722
  Serious: No
  Sender: FDA-Public Use
  Company Number: US-TEVA-2023-US-2888421

PATIENT
  Age: 72 Year
  Sex: Female
  Weight: 81.65 kg

DRUGS (6)
  1. AJOVY [Interacting]
     Active Substance: FREMANEZUMAB-VFRM
     Indication: Migraine
     Dosage: 225 MG / 1.5 ML
     Route: 065
     Dates: start: 2019, end: 202301
  2. COVID-19 VACCINE NOS [Interacting]
     Active Substance: COVID-19 VACCINE NOS
     Indication: Product used for unknown indication
     Route: 065
  3. SYNTHROID [Concomitant]
     Active Substance: LEVOTHYROXINE SODIUM
     Indication: Product used for unknown indication
     Route: 065
  4. LOSARTAN [Concomitant]
     Active Substance: LOSARTAN
     Indication: Product used for unknown indication
     Route: 065
  5. DIAZEPAM [Concomitant]
     Active Substance: DIAZEPAM
     Indication: Product used for unknown indication
     Dosage: 1/4 OF 5MG
     Route: 065
  6. RECLAST [Concomitant]
     Active Substance: ZOLEDRONIC ACID
     Indication: Product used for unknown indication
     Route: 042
     Dates: start: 202002

REACTIONS (9)
  - Medication overuse headache [Not Recovered/Not Resolved]
  - Illness [Not Recovered/Not Resolved]
  - Influenza [Not Recovered/Not Resolved]
  - Drug ineffective [Unknown]
  - Drug resistance [Unknown]
  - Drug interaction [Unknown]
  - Off label use [Unknown]
  - Product use issue [Unknown]
  - Body height decreased [Unknown]

NARRATIVE: CASE EVENT DATE: 20210101
